FAERS Safety Report 7211407-1 (Version None)
Quarter: 2011Q1

REPORT INFORMATION
  Report Type: 
  Country: None (occurrence: None)
  Receive Date: 20110105
  Receipt Date: 20101227
  Transmission Date: 20110831
  Serious: Yes (Hospitalization)
  Sender: FDA-Public Use
  Company Number: IT-ASTRAZENECA-2010SE38085

PATIENT
  Age: 89 Year
  Sex: Female

DRUGS (2)
  1. ZESTORETIC [Suspect]
     Dosage: 20+12.5 MG/DAY
     Route: 048
     Dates: start: 20090425, end: 20090727
  2. TICLID [Suspect]
     Route: 048
     Dates: start: 20090425, end: 20090727

REACTIONS (3)
  - PARAESTHESIA [None]
  - ABDOMINAL PAIN UPPER [None]
  - HEART RATE IRREGULAR [None]
